FAERS Safety Report 6731948-0 (Version None)
Quarter: 2010Q2

REPORT INFORMATION
  Report Type: 
  Country: None (occurrence: None)
  Receive Date: 20100519
  Receipt Date: 20100510
  Transmission Date: 20101027
  Serious: Yes (Hospitalization)
  Sender: FDA-Public Use
  Company Number: JP-ASTRAZENECA-2010SE22301

PATIENT

DRUGS (2)
  1. ECARD HD [Suspect]
     Indication: HYPERTENSION
     Route: 048
     Dates: start: 20100401, end: 20100401
  2. TAKEPRON [Concomitant]
     Route: 048

REACTIONS (4)
  - ANAEMIA [None]
  - BRONCHITIS [None]
  - LIVER DISORDER [None]
  - RENAL FAILURE [None]
